FAERS Safety Report 10238239 (Version 1)
Quarter: 2014Q2

REPORT INFORMATION
  Report Type: Spontaneous
  Country: US (occurrence: US)
  Receive Date: 20140616
  Receipt Date: 20140616
  Transmission Date: 20141212
  Serious: No
  Sender: FDA-Public Use
  Company Number: US-PFIZER INC-2014161318

PATIENT
  Age: 61 Year
  Sex: Female
  Weight: 81.63 kg

DRUGS (3)
  1. GABAPENTIN [Suspect]
     Indication: NEUROPATHY PERIPHERAL
     Dosage: 300 MG, 3X/DAY
     Route: 048
     Dates: start: 2014
  2. GABAPENTIN [Suspect]
     Indication: NEUROPATHY PERIPHERAL
  3. CELEBREX [Concomitant]
     Dosage: UNK

REACTIONS (1)
  - Drug ineffective [Unknown]
